FAERS Safety Report 23693068 (Version 1)
Quarter: 2024Q2

REPORT INFORMATION
  Report Type: Report from Study
  Country: PH (occurrence: PH)
  Receive Date: 20240401
  Receipt Date: 20240401
  Transmission Date: 20240716
  Serious: Yes (Death)
  Sender: FDA-Public Use
  Company Number: PH-OTSUKA-2024_004181

PATIENT
  Sex: Male

DRUGS (1)
  1. TOLVAPTAN [Suspect]
     Active Substance: TOLVAPTAN
     Indication: Fluid retention
     Dosage: UNK, QD (15MG 1/2 TABLET A DAY)
     Route: 048

REACTIONS (4)
  - Myocardial infarction [Fatal]
  - Disease complication [Fatal]
  - Wrong technique in product usage process [Unknown]
  - Underdose [Unknown]
